FAERS Safety Report 8963689 (Version 1)
Quarter: 2012Q4

REPORT INFORMATION
  Report Type: 
  Country: US (occurrence: US)
  Receive Date: 20121214
  Receipt Date: 20121214
  Transmission Date: 20130627
  Serious: Yes (Other)
  Sender: FDA-Public Use
  Company Number: US-SANOFI-AVENTIS-2012SA090476

PATIENT
  Age: 68 Year
  Sex: Female

DRUGS (3)
  1. LANTUS SOLOSTAR [Suspect]
     Dosage: Dose:50 unit(s)
     Route: 058
  2. SOLOSTAR [Suspect]
  3. HUMALOG [Suspect]
     Route: 051

REACTIONS (3)
  - Retinopathy proliferative [Unknown]
  - Intraocular pressure increased [Unknown]
  - Visual impairment [Unknown]
